FAERS Safety Report 11913051 (Version 4)
Quarter: 2017Q4

REPORT INFORMATION
  Report Type: Report from Study
  Country: BR (occurrence: BR)
  Receive Date: 20160113
  Receipt Date: 20171026
  Transmission Date: 20180320
  Serious: Yes (Other)
  Sender: FDA-Public Use
  Company Number: PHHY2015BR173672

PATIENT
  Age: 64 Year
  Sex: Female
  Weight: 71 kg

DRUGS (7)
  1. ACLASTA [Suspect]
     Active Substance: ZOLEDRONIC ACID
     Indication: OSTEOPOROSIS
     Dosage: 1 DF (5 MG/100 ML), Q12MO
     Route: 042
  2. VENAFLON [Concomitant]
     Indication: THROMBOSIS
     Dosage: 3 DF, QD
     Route: 048
  3. TORLOS-H [Concomitant]
     Indication: BLOOD PRESSURE FLUCTUATION
     Dosage: 1 DF, QD (10 YEARS AGO)
     Route: 048
  4. MAREVAN [Concomitant]
     Active Substance: WARFARIN SODIUM
     Indication: THROMBOSIS
     Dosage: 1 DF, QD (6 MONTHS AGO)
     Route: 048
  5. OMEPRAZOLE. [Concomitant]
     Active Substance: OMEPRAZOLE
     Indication: GASTRIC DISORDER
     Dosage: 2 DF, QD (APPROXIMATELY 20 YEARS AGO)
     Route: 048
  6. LASIX [Concomitant]
     Active Substance: FUROSEMIDE
     Indication: RENAL DISORDER
     Dosage: 2 DF, QD (8 YEARS AGO)
     Route: 048
  7. TORLOS-H [Concomitant]
     Indication: HYPERTENSION

REACTIONS (5)
  - Diarrhoea [Recovering/Resolving]
  - Cardiovascular disorder [Unknown]
  - Food allergy [Unknown]
  - Diverticulitis [Recovering/Resolving]
  - Lower limb fracture [Not Recovered/Not Resolved]

NARRATIVE: CASE EVENT DATE: 20151229
